FAERS Safety Report 10419711 (Version 1)
Quarter: 2014Q3

REPORT INFORMATION
  Report Type: Report from Study
  Country: KE (occurrence: KE)
  Receive Date: 20140829
  Receipt Date: 20140829
  Transmission Date: 20150326
  Serious: Yes (Death, Hospitalization)
  Sender: FDA-Public Use
  Company Number: KE-BRISTOL-MYERS SQUIBB COMPANY-21316997

PATIENT
  Age: 25 Year
  Sex: Female

DRUGS (8)
  1. SEPTRIN [Suspect]
     Active Substance: SULFAMETHOXAZOLE\TRIMETHOPRIM
     Dates: start: 20140619, end: 20140729
  2. CEFTRIAXONE. [Suspect]
     Active Substance: CEFTRIAXONE
     Dates: start: 20140719, end: 20140729
  3. AZITHROMYCIN [Suspect]
     Active Substance: AZITHROMYCIN ANHYDROUS
     Dates: start: 20140622, end: 20140624
  4. EFAVIRENZ [Suspect]
     Active Substance: EFAVIRENZ
     Indication: HIV INFECTION
     Dates: start: 20140630, end: 20140729
  5. EMTRICITABINE [Suspect]
     Active Substance: EMTRICITABINE
     Indication: HIV INFECTION
     Dates: start: 20140630, end: 20140729
  6. METRONIDAZOLE. [Suspect]
     Active Substance: METRONIDAZOLE
     Dates: start: 20140619, end: 20140729
  7. TENOFOVIR [Suspect]
     Active Substance: TENOFOVIR
     Indication: HIV INFECTION
     Dates: start: 20140630, end: 20140729
  8. LOPERAMIDE [Suspect]
     Active Substance: LOPERAMIDE
     Dates: start: 20140622, end: 20140709

REACTIONS (8)
  - Diarrhoea [Unknown]
  - Thrombocytopenia [Fatal]
  - Dehydration [Unknown]
  - Oral candidiasis [Unknown]
  - Sepsis [Fatal]
  - Pulmonary tuberculosis [Fatal]
  - Meningitis [Fatal]
  - Cachexia [Unknown]

NARRATIVE: CASE EVENT DATE: 2014
